FAERS Safety Report 15968268 (Version 3)
Quarter: 2019Q2

REPORT INFORMATION
  Report Type: Spontaneous
  Country: FR (occurrence: FR)
  Receive Date: 20190215
  Receipt Date: 20190419
  Transmission Date: 20190711
  Serious: Yes (Hospitalization, Other)
  Sender: FDA-Public Use
  Company Number: FR-GRUNENTHAL-2019-11191

PATIENT
  Age: 57 Year
  Sex: Male

DRUGS (10)
  1. QUTENZA [Suspect]
     Active Substance: CAPSAICIN
     Dosage: UNK
     Route: 003
     Dates: start: 20180606
  2. QUTENZA [Suspect]
     Active Substance: CAPSAICIN
     Dosage: UNK
     Route: 003
     Dates: start: 20180905
  3. QUTENZA [Suspect]
     Active Substance: CAPSAICIN
     Dosage: UNK
     Route: 003
     Dates: start: 20181212
  4. LAROXYL [Concomitant]
     Active Substance: AMITRIPTYLINE HYDROCHLORIDE
     Indication: NEURALGIA
     Dosage: 500 MG, 1/DAY
  5. BILASKA [Concomitant]
     Active Substance: BILASTINE
     Indication: URTICARIA CHRONIC
     Dosage: 2 DF, 1/DAY
     Route: 048
  6. IXPRIM [Concomitant]
     Active Substance: ACETAMINOPHEN\TRAMADOL HYDROCHLORIDE
     Indication: NEURALGIA
     Dosage: UNK, AS NEEDED
     Route: 048
  7. BILASKA [Concomitant]
     Active Substance: BILASTINE
     Dosage: 1 DF, 1/DAY
  8. QUTENZA [Suspect]
     Active Substance: CAPSAICIN
     Indication: NEURALGIA
     Dosage: 1 DF, QUARTERLY
     Route: 003
     Dates: start: 20180306
  9. NEURONTIN [Concomitant]
     Active Substance: GABAPENTIN
     Indication: NEURALGIA
     Dosage: 1200 MG, 1/DAY
     Route: 048
  10. TRAMADOL HYDROCHLORIDE. [Concomitant]
     Active Substance: TRAMADOL HYDROCHLORIDE
     Indication: NEURALGIA
     Dosage: 900 MG, 1/DAY
     Route: 048

REACTIONS (8)
  - Application site papules [Recovering/Resolving]
  - Burns third degree [Recovering/Resolving]
  - Application site reaction [Recovering/Resolving]
  - Burns second degree [Recovering/Resolving]
  - Application site rash [Recovering/Resolving]
  - Application site vesicles [Recovering/Resolving]
  - Application site ulcer [Recovering/Resolving]
  - Application site necrosis [Recovering/Resolving]

NARRATIVE: CASE EVENT DATE: 2018
